FAERS Safety Report 5690424-7 (Version None)
Quarter: 2008Q1

REPORT INFORMATION
  Report Type: 
  Country: None (occurrence: None)
  Receive Date: 20080331
  Receipt Date: 20080331
  Transmission Date: 20080703
  Serious: No
  Sender: FDA-Public Use
  Company Number: None

PATIENT

DRUGS (1)
  1. SINGULAIR [Suspect]

REACTIONS (10)
  - ABNORMAL BEHAVIOUR [None]
  - ANGER [None]
  - ANXIETY [None]
  - ASTHMA [None]
  - ATTENTION DEFICIT/HYPERACTIVITY DISORDER [None]
  - AUTISM [None]
  - CONVULSION [None]
  - FEELING ABNORMAL [None]
  - HOMICIDAL IDEATION [None]
  - SUICIDAL IDEATION [None]
